FAERS Safety Report 7642335-5 (Version None)
Quarter: 2011Q3

REPORT INFORMATION
  Report Type: 
  Country: None (occurrence: None)
  Receive Date: 20110728
  Receipt Date: 20110719
  Transmission Date: 20111222
  Serious: Yes (Hospitalization, Other)
  Sender: FDA-Public Use
  Company Number: JP-ASTRAZENECA-2010SE41789

PATIENT
  Age: 69 Year
  Sex: Male
  Weight: 46 kg

DRUGS (3)
  1. IRESSA [Suspect]
     Indication: LUNG ADENOCARCINOMA
     Route: 048
     Dates: start: 20090901
  2. IRESSA [Suspect]
     Route: 048
     Dates: start: 20100129, end: 20100205
  3. IRESSA [Suspect]
     Route: 048
     Dates: start: 20101001

REACTIONS (1)
  - INTERSTITIAL LUNG DISEASE [None]
